FAERS Safety Report 6231853-2 (Version None)
Quarter: 2009Q2

REPORT INFORMATION
  Report Type: 
  Country: None (occurrence: None)
  Receive Date: 20090612
  Receipt Date: 20090612
  Transmission Date: 20091009
  Serious: Yes (Other)
  Sender: FDA-Public Use
  Company Number: None

PATIENT
  Sex: Female
  Weight: 81.6475 kg

DRUGS (1)
  1. ACTONEL [Suspect]
     Indication: OSTEOPOROSIS PROPHYLAXIS
     Dosage: 1 TABLET ONCE A MONTH
     Dates: start: 20090418, end: 20090418

REACTIONS (9)
  - ARTHRALGIA [None]
  - BALANCE DISORDER [None]
  - CHILLS [None]
  - GAIT DISTURBANCE [None]
  - GLOSSODYNIA [None]
  - GRIP STRENGTH DECREASED [None]
  - MUSCULAR WEAKNESS [None]
  - MUSCULOSKELETAL STIFFNESS [None]
  - PYREXIA [None]
